FAERS Safety Report 4887409-7 (Version None)
Quarter: 2006Q1

REPORT INFORMATION
  Report Type: 
  Country: None (occurrence: None)
  Receive Date: 20060118
  Receipt Date: 20060110
  Transmission Date: 20060701
  Serious: Yes (Hospitalization)
  Sender: FDA-Public Use
  Company Number: TCI2005A05207

PATIENT
  Age: 57 Year
  Sex: Male

DRUGS (4)
  1. ACTOS [Suspect]
     Indication: DIABETES MELLITUS NON-INSULIN-DEPENDENT
     Dosage: 60 MG (30 MG, 1 IN 1 D), PER ORAL
     Route: 048
     Dates: end: 20051203
  2. AMARYL (GLIMPIRIDE) [Concomitant]
  3. BIOFERMIN (BIOFERMIN) [Concomitant]
  4. CEREKINON (TRIMEBUTINE MALEATE) [Concomitant]

REACTIONS (21)
  - AMNESIA [None]
  - ANAEMIA [None]
  - ARTERIOSCLEROSIS [None]
  - BLOOD CATECHOLAMINES INCREASED [None]
  - CAPILLARY LEAK SYNDROME [None]
  - CARDIAC FAILURE CONGESTIVE [None]
  - DIARRHOEA [None]
  - FALL [None]
  - GASTROINTESTINAL DISORDER [None]
  - HEART SOUNDS ABNORMAL [None]
  - HYPOGLYCAEMIC COMA [None]
  - LARYNGEAL ERYTHEMA [None]
  - LYMPHADENOPATHY [None]
  - METABOLIC ACIDOSIS [None]
  - OEDEMA PERIPHERAL [None]
  - ORAL INTAKE REDUCED [None]
  - OVERDOSE [None]
  - PLEURAL EFFUSION [None]
  - PULMONARY CONGESTION [None]
  - PULMONARY OEDEMA [None]
  - SOMNOLENCE [None]
